FAERS Safety Report 4846008-3 (Version None)
Quarter: 2005Q4

REPORT INFORMATION
  Report Type: 
  Country: None (occurrence: None)
  Receive Date: 20051205
  Receipt Date: 20051205
  Transmission Date: 20060501
  Serious: Yes (Life-Threatening)
  Sender: FDA-Public Use
  Company Number: None

PATIENT
  Age: 64 Year
  Sex: Male
  Weight: 79.3795 kg

DRUGS (4)
  1. AMBIEN [Suspect]
     Indication: INSOMNIA
     Dosage: 5 OR 10 MG HS PO
     Route: 048
     Dates: start: 20051115, end: 20051118
  2. AMBIEN [Suspect]
     Indication: STRESS
     Dosage: 5 OR 10 MG HS PO
     Route: 048
     Dates: start: 20051115, end: 20051118
  3. AMBIEN CR [Suspect]
     Indication: INSOMNIA
     Dosage: 12.5 MG HS PO
     Route: 048
     Dates: start: 20051119, end: 20051124
  4. AMBIEN CR [Suspect]
     Indication: STRESS
     Dosage: 12.5 MG HS PO
     Route: 048
     Dates: start: 20051119, end: 20051124

REACTIONS (2)
  - HOMICIDAL IDEATION [None]
  - OBSESSIVE THOUGHTS [None]
